FAERS Safety Report 8648075 (Version 3)
Quarter: 2013Q2

REPORT INFORMATION
  Report Type: Spontaneous
  Country: DK (occurrence: DK)
  Receive Date: 20120703
  Receipt Date: 20130405
  Transmission Date: 20140414
  Serious: Yes (Disabling)
  Sender: FDA-Public Use
  Company Number: DK-ABBOTT-12P-044-0950028-00

PATIENT
  Age: 29 Year
  Sex: 0

DRUGS (1)
  1. HUMIRA [Suspect]
     Indication: RHEUMATOID ARTHRITIS
     Route: 058
     Dates: start: 20080616, end: 201012

REACTIONS (10)
  - Visual impairment [Not Recovered/Not Resolved]
  - Vision blurred [Unknown]
  - Eye allergy [Unknown]
  - Blindness [Unknown]
  - Ulcerative keratitis [Unknown]
  - Corneal disorder [Unknown]
  - Eye disorder [Unknown]
  - House dust allergy [Unknown]
  - Allergy to animal [Unknown]
  - Allergy to plants [Unknown]
